FAERS Safety Report 6993672-9 (Version None)
Quarter: 2010Q3

REPORT INFORMATION
  Report Type: 
  Country: None (occurrence: None)
  Receive Date: 20100917
  Receipt Date: 20071212
  Transmission Date: 20110219
  Serious: Yes (Other)
  Sender: FDA-Public Use
  Company Number: US-ASTRAZENECA-2006UW23185

PATIENT
  Age: 18542 Day
  Sex: Female
  Weight: 70.3 kg

DRUGS (19)
  1. SEROQUEL [Suspect]
     Indication: DEPRESSION
     Route: 048
     Dates: start: 20030101
  2. SEROQUEL [Suspect]
     Indication: BIPOLAR DISORDER
     Route: 048
     Dates: start: 20030101
  3. SEROQUEL [Suspect]
     Indication: ANXIETY
     Route: 048
     Dates: start: 20030101
  4. SEROQUEL [Suspect]
     Dosage: 50-300 MG
     Route: 048
     Dates: start: 20040101
  5. SEROQUEL [Suspect]
     Dosage: 50-300 MG
     Route: 048
     Dates: start: 20040101
  6. SEROQUEL [Suspect]
     Dosage: 50-300 MG
     Route: 048
     Dates: start: 20040101
  7. LISINOPRIL [Concomitant]
     Dosage: 10-20 MG DAILY
     Dates: start: 20050101
  8. METHIMAZOLE [Concomitant]
     Indication: HYPOTHYROIDISM
     Dates: start: 20050101
  9. GLUCOTROL [Concomitant]
     Dosage: 5-15 MG
     Dates: start: 20020101
  10. QUININE SULFATE [Concomitant]
     Indication: MUSCLE SPASMS
     Dates: start: 20050101
  11. LIPITOR [Concomitant]
     Dates: start: 20050101
  12. PRILOSEC [Concomitant]
     Indication: GASTROOESOPHAGEAL REFLUX DISEASE
     Route: 048
     Dates: start: 20030101
  13. GLIPIZIDE [Concomitant]
     Dates: start: 20020101
  14. METFORMIN [Concomitant]
     Route: 048
     Dates: start: 20050101
  15. PREVACID [Concomitant]
     Dates: start: 20020101
  16. ACTOS [Concomitant]
     Route: 048
     Dates: start: 20030101
  17. CLONAZEPAM [Concomitant]
     Indication: ANXIETY
     Route: 048
     Dates: start: 20040101
  18. PROPOXYPHENE NAPSYLATE AND ACETAMINOPHEN [Concomitant]
     Dosage: 100/650 EVERY 6 HOURS
     Route: 048
     Dates: start: 20040101
  19. ORPHENADRINE CITRATE [Concomitant]
     Route: 048
     Dates: start: 20050101

REACTIONS (2)
  - PANCREATITIS [None]
  - PANCREATITIS ACUTE [None]
